FAERS Safety Report 7125813-7 (Version None)
Quarter: 2010Q4

REPORT INFORMATION
  Report Type: 
  Country: None (occurrence: None)
  Receive Date: 20101129
  Receipt Date: 20101122
  Transmission Date: 20110411
  Serious: Yes (Other)
  Sender: FDA-Public Use
  Company Number: B0686373A

PATIENT
  Sex: Male

DRUGS (1)
  1. BACTROBAN [Suspect]
     Route: 065
     Dates: start: 20101101, end: 20101101

REACTIONS (2)
  - SWELLING [None]
  - WOUND HAEMORRHAGE [None]
